FAERS Safety Report 18570005 (Version 1)
Quarter: 2020Q4

REPORT INFORMATION
  Report Type: Spontaneous
  Country: AU (occurrence: AU)
  Receive Date: 20201202
  Receipt Date: 20201202
  Transmission Date: 20210114
  Serious: Yes (Other)
  Sender: FDA-Public Use
  Company Number: AU-009507513-2011AUS016020

PATIENT
  Age: 78 Year
  Sex: Male
  Weight: 64.5 kg

DRUGS (5)
  1. STEGLATRO [Suspect]
     Active Substance: ERTUGLIFLOZIN PIDOLATE
     Indication: TYPE 2 DIABETES MELLITUS
     Dosage: 5 MG, T DAILY
     Route: 048
     Dates: start: 20200807
  2. CADIVAST [Concomitant]
     Indication: DYSLIPIDAEMIA
  3. CADIVAST [Concomitant]
     Indication: HYPERTENSION
     Dosage: 1 TAB DALY; STRENGTH: 5/20 (UNITS NOT PROVIDED)
     Dates: start: 20071108
  4. DUODART [Concomitant]
     Active Substance: DUTASTERIDE\TAMSULOSIN
     Indication: BENIGN PROSTATIC HYPERPLASIA
     Dosage: 1 TAB DAILY
     Route: 048
     Dates: start: 20130526
  5. JANUMET [Suspect]
     Active Substance: METFORMIN HYDROCHLORIDE\SITAGLIPTIN PHOSPHATE
     Indication: TYPE 2 DIABETES MELLITUS
     Dosage: 1 TAB B.D.; STRENGTH: 50/500 (UNITS NOT PROVIDED)
     Route: 048
     Dates: start: 20100616

REACTIONS (5)
  - Diabetes mellitus inadequate control [Unknown]
  - Pancreatic carcinoma [Unknown]
  - Blood glucose increased [Unknown]
  - Pollakiuria [Unknown]
  - Weight decreased [Unknown]

NARRATIVE: CASE EVENT DATE: 2020
